FAERS Safety Report 12939127 (Version 1)
Quarter: 2016Q4

REPORT INFORMATION
  Report Type: Report from Study
  Country: CO (occurrence: CO)
  Receive Date: 20161115
  Receipt Date: 20161115
  Transmission Date: 20170207
  Serious: Yes (Hospitalization)
  Sender: FDA-Public Use
  Company Number: CO-JNJFOC-20161112508

PATIENT
  Age: 54 Year
  Sex: Female
  Weight: 65 kg

DRUGS (4)
  1. OXAPROZIN. [Concomitant]
     Active Substance: OXAPROZIN
     Route: 065
  2. SIMPONI [Suspect]
     Active Substance: GOLIMUMAB
     Indication: SPONDYLOARTHROPATHY
     Route: 058
     Dates: start: 20150520
  3. ACETAMINOPHEN. [Concomitant]
     Active Substance: ACETAMINOPHEN
     Route: 065
  4. CODEINE [Concomitant]
     Active Substance: CODEINE
     Route: 065

REACTIONS (6)
  - Pyrexia [Not Recovered/Not Resolved]
  - General physical condition abnormal [Unknown]
  - Abdominal discomfort [Not Recovered/Not Resolved]
  - Abdominal distension [Not Recovered/Not Resolved]
  - Headache [Not Recovered/Not Resolved]
  - Feeling abnormal [Unknown]

NARRATIVE: CASE EVENT DATE: 20161027
